FAERS Safety Report 7674942-8 (Version None)
Quarter: 2011Q3

REPORT INFORMATION
  Report Type: 
  Country: None (occurrence: None)
  Receive Date: 20110810
  Receipt Date: 20110802
  Transmission Date: 20111222
  Serious: Yes (Other)
  Sender: FDA-Public Use
  Company Number: PHHY2011US68104

PATIENT
  Age: 76 Year
  Sex: Male

DRUGS (1)
  1. PACLITAXEL [Suspect]
     Indication: METASTATIC MALIGNANT MELANOMA

REACTIONS (5)
  - VISION BLURRED [None]
  - CYSTOID MACULAR OEDEMA [None]
  - SCOTOMA [None]
  - VISUAL ACUITY REDUCED [None]
  - MACULOPATHY [None]
